FAERS Safety Report 12459530 (Version 2)
Quarter: 2016Q2

REPORT INFORMATION
  Report Type: Spontaneous
  Country: US (occurrence: US)
  Receive Date: 20160613
  Receipt Date: 20160628
  Transmission Date: 20160815
  Serious: Yes (Other)
  Sender: FDA-Public Use
  Company Number: US-JAZZ-2016-US-010256

PATIENT
  Age: 59 Year
  Sex: Female

DRUGS (2)
  1. PRIALT [Suspect]
     Active Substance: ZICONOTIDE ACETATE
     Indication: SPINAL LAMINECTOMY
     Dosage: 0.125 ?G, QH
     Route: 037
  2. PRIALT [Suspect]
     Active Substance: ZICONOTIDE ACETATE
     Indication: PAIN
     Dosage: UNK ?G, QH
     Route: 037

REACTIONS (4)
  - Loss of consciousness [Unknown]
  - Stress [Unknown]
  - Arthropathy [Unknown]
  - Device issue [Unknown]

NARRATIVE: CASE EVENT DATE: 20150814
